FAERS Safety Report 24643747 (Version 1)
Quarter: 2024Q4

REPORT INFORMATION
  Report Type: Spontaneous
  Country: AT (occurrence: AT)
  Receive Date: 20241120
  Receipt Date: 20241120
  Transmission Date: 20250114
  Serious: Yes (Other)
  Sender: EMD SERONO INC
  Company Number: AT-Merck Healthcare KGaA-2024060090

PATIENT
  Sex: Male

DRUGS (1)
  1. TEPOTINIB [Suspect]
     Active Substance: TEPOTINIB
     Indication: Non-small cell lung cancer
     Dates: start: 202407

REACTIONS (7)
  - Horner^s syndrome [Unknown]
  - Bone erosion [Unknown]
  - Cerebral venous sinus thrombosis [Unknown]
  - Pneumonia [Unknown]
  - Vena cava thrombosis [Unknown]
  - Psoriasis [Unknown]
  - Disease progression [Unknown]
